FAERS Safety Report 15166538 (Version 1)
Quarter: 2018Q3

REPORT INFORMATION
  Report Type: Spontaneous
  Country: US (occurrence: US)
  Receive Date: 20180719
  Receipt Date: 20180719
  Transmission Date: 20181010
  Serious: No
  Sender: FDA-Public Use
  Company Number: US-OTSUKA-2018_018289

PATIENT
  Age: 49 Year
  Sex: Male

DRUGS (2)
  1. ESCITALOPRAM [Concomitant]
     Active Substance: ESCITALOPRAM OXALATE
     Indication: PRODUCT USED FOR UNKNOWN INDICATION
     Dosage: UNK
     Route: 065
  2. REXULTI [Suspect]
     Active Substance: BREXPIPRAZOLE
     Indication: DEPRESSION
     Dosage: 0.25 MG, QD
     Route: 065
     Dates: start: 201803

REACTIONS (3)
  - Wrong technique in product usage process [Unknown]
  - Drug prescribing error [Unknown]
  - Underdose [Unknown]

NARRATIVE: CASE EVENT DATE: 201803
